FAERS Safety Report 8471287-3 (Version None)
Quarter: 2012Q2

REPORT INFORMATION
  Report Type: 
  Country: None (occurrence: None)
  Receive Date: 20120627
  Receipt Date: 20120618
  Transmission Date: 20120825
  Serious: Yes (Other)
  Sender: FDA-Public Use
  Company Number: FR-FRI-1000036617

PATIENT
  Sex: Female

DRUGS (2)
  1. NEBIVOLOL [Suspect]
     Dosage: 1.25 MG
     Route: 048
     Dates: start: 20120314, end: 20120315
  2. FUROSEMIDE [Concomitant]

REACTIONS (2)
  - BRONCHOSPASM [None]
  - CARDIAC FAILURE [None]
